FAERS Safety Report 24021652 (Version 1)
Quarter: 2024Q2

REPORT INFORMATION
  Report Type: Report from Study
  Country: HR (occurrence: HR)
  Receive Date: 20240627
  Receipt Date: 20240627
  Transmission Date: 20240716
  Serious: No
  Sender: FDA-Public Use
  Company Number: HR-ROCHE-3575729

PATIENT
  Sex: Male

DRUGS (1)
  1. GLOFITAMAB [Suspect]
     Active Substance: GLOFITAMAB
     Indication: Mantle cell lymphoma
     Dosage: FIRST CYCLE DOSE OF 2,5MG ON 31 MAY 2024.
     Route: 042

REACTIONS (2)
  - Pyrexia [Recovered/Resolved]
  - Hypotension [Recovered/Resolved]
